FAERS Safety Report 9321572 (Version 1)
Quarter: 2013Q2

REPORT INFORMATION
  Report Type: Spontaneous
  Country: FI (occurrence: FI)
  Receive Date: 20130531
  Receipt Date: 20130531
  Transmission Date: 20140414
  Serious: Yes (Hospitalization, Other)
  Sender: FDA-Public Use
  Company Number: FI-ELI_LILLY_AND_COMPANY-FI201305006274

PATIENT
  Sex: Female

DRUGS (7)
  1. FORSTEO [Suspect]
     Indication: OSTEOPOROSIS
     Dosage: 20 UG, QD
     Route: 058
     Dates: start: 20120402
  2. ORLOC [Concomitant]
     Indication: HYPERTENSION
     Dosage: UNK
  3. SIMVASTATIN [Concomitant]
     Indication: BLOOD CHOLESTEROL INCREASED
     Dosage: UNK
  4. THYROXIN [Concomitant]
     Indication: HYPOTHYROIDISM
     Dosage: UNK
  5. PANADOL [Concomitant]
     Indication: PAIN
     Dosage: UNK
  6. FURESIS [Concomitant]
     Indication: DEHYDRATION
     Dosage: UNK
  7. CAD [Concomitant]
     Indication: MEDICAL DIET
     Dosage: UNK

REACTIONS (1)
  - Haemoglobin decreased [Recovering/Resolving]
